FAERS Safety Report 14627132 (Version 3)
Quarter: 2018Q2

REPORT INFORMATION
  Report Type: Spontaneous
  Country: HU (occurrence: HU)
  Receive Date: 20180312
  Receipt Date: 20180629
  Transmission Date: 20180711
  Serious: Yes (Other)
  Sender: FDA-Public Use
  Company Number: HU-MYLANLABS-2018M1014932

PATIENT
  Age: 18 Year
  Sex: Female

DRUGS (13)
  1. TETRACYCLINE [Suspect]
     Active Substance: TETRACYCLINE
     Indication: OCULAR ROSACEA
     Dosage: UNK
  2. ZINC ACETATE [Suspect]
     Active Substance: ZINC ACETATE
     Indication: OCULAR ROSACEA
     Dosage: UNK
  3. FUSIDIC ACID [Suspect]
     Active Substance: FUSIDIC ACID
     Indication: OCULAR ROSACEA
     Dosage: UNK
  4. ERYTHROMYCIN. [Suspect]
     Active Substance: ERYTHROMYCIN
     Indication: OCULAR ROSACEA
     Dosage: UNK
  5. OXYTETRACYCLINE [Suspect]
     Active Substance: OXYTETRACYCLINE
     Indication: OCULAR ROSACEA
     Dosage: UNK
  6. FLUOROMETHOLONE. [Suspect]
     Active Substance: FLUOROMETHOLONE
     Indication: OCULAR ROSACEA
     Dosage: UNK
  7. BETAMETHASONE. [Suspect]
     Active Substance: BETAMETHASONE
     Indication: OCULAR ROSACEA
     Dosage: UNK
  8. METRONIDAZOLE. [Suspect]
     Active Substance: METRONIDAZOLE
     Indication: OCULAR ROSACEA
     Dosage: UNK
  9. DOXYCYCLINE. [Suspect]
     Active Substance: DOXYCYCLINE
     Indication: OCULAR ROSACEA
     Dosage: UNK
  10. VITAMIN A PALMITATE                /00056002/ [Suspect]
     Active Substance: VITAMIN A PALMITATE
     Indication: OCULAR ROSACEA
     Dosage: UNK
  11. INDOMETACIN [Suspect]
     Active Substance: INDOMETHACIN
     Indication: OCULAR ROSACEA
     Dosage: UNK
  12. TOBRAMYCIN. [Suspect]
     Active Substance: TOBRAMYCIN
     Indication: OCULAR ROSACEA
     Dosage: UNK
  13. DEXAMETHASONE. [Suspect]
     Active Substance: DEXAMETHASONE
     Indication: OCULAR ROSACEA
     Dosage: UNK

REACTIONS (6)
  - Maternal exposure during pregnancy [Unknown]
  - Visual impairment [Recovered/Resolved]
  - Corneal perforation [Recovered/Resolved]
  - Corneal neovascularisation [Recovered/Resolved]
  - Product use in unapproved indication [Unknown]
  - Off label use [Unknown]
